FAERS Safety Report 9779639 (Version 1)
Quarter: 2013Q4

REPORT INFORMATION
  Report Type: Spontaneous
  Country: US (occurrence: US)
  Receive Date: 20131223
  Receipt Date: 20131223
  Transmission Date: 20140711
  Serious: No
  Sender: FDA-Public Use
  Company Number: US-PFIZER INC-2013361622

PATIENT
  Age: 53 Year
  Sex: Male
  Weight: 99.77 kg

DRUGS (9)
  1. VIAGRA [Suspect]
     Indication: ERECTILE DYSFUNCTION
     Dosage: 50 MG, AS NEEDED
     Route: 048
     Dates: start: 201301, end: 20130915
  2. PROAIR [Concomitant]
     Dosage: UNK
  3. SYMBICORT [Concomitant]
     Dosage: UNK
  4. AMITRIPTYLINE [Concomitant]
     Dosage: UNK
  5. ASPIRIN [Concomitant]
     Dosage: UNK
  6. LANTUS [Concomitant]
     Dosage: UNK
  7. HUMALOG [Concomitant]
     Dosage: UNK
  8. LISINOPRIL [Concomitant]
     Dosage: 10 MG, UNK
  9. LYRICA [Concomitant]
     Dosage: UNK

REACTIONS (5)
  - Eye disorder [Unknown]
  - Cyanopsia [Unknown]
  - Visual brightness [Unknown]
  - Pre-existing condition improved [Unknown]
  - Therapeutic response unexpected [Unknown]
